FAERS Safety Report 5205749-9 (Version None)
Quarter: 2007Q1

REPORT INFORMATION
  Report Type: 
  Country: None (occurrence: None)
  Receive Date: 20070111
  Receipt Date: 20070109
  Transmission Date: 20070707
  Serious: Yes (Hospitalization)
  Sender: FDA-Public Use
  Company Number: BE-BRISTOL-MYERS SQUIBB COMPANY-13630231

PATIENT
  Age: 66 Year
  Sex: Male

DRUGS (2)
  1. METHOTREXATE [Suspect]
     Indication: PSORIATIC ARTHROPATHY
     Route: 048
     Dates: start: 20051209, end: 20051216
  2. FOLIC ACID [Concomitant]
     Route: 048

REACTIONS (10)
  - BONE MARROW FAILURE [None]
  - CANDIDIASIS [None]
  - DERMATITIS EXFOLIATIVE [None]
  - HEPATOSPLENOMEGALY [None]
  - HEPATOTOXICITY [None]
  - MOUTH ULCERATION [None]
  - NAUSEA [None]
  - PYREXIA [None]
  - STOMATITIS [None]
  - TRANSAMINASES INCREASED [None]
